FAERS Safety Report 13826624 (Version 1)
Quarter: 2017Q3

REPORT INFORMATION
  Report Type: Spontaneous
  Country: US (occurrence: US)
  Receive Date: 20170802
  Receipt Date: 20170802
  Transmission Date: 20171127
  Serious: No
  Sender: FDA-Public Use
  Company Number: US-ROCHE-637489

PATIENT
  Age: 59 Year
  Sex: Female
  Weight: 63.5 kg

DRUGS (9)
  1. FISH OIL [Concomitant]
     Active Substance: FISH OIL
     Dosage: INDICATION: AHM
     Route: 048
  2. GLUCOSAMINE [Concomitant]
     Active Substance: GLUCOSAMINE
     Dosage: GLUCOSAMINE COMPLEX; INDICATION: AHM
     Route: 048
  3. ASA [Concomitant]
     Active Substance: ASPIRIN
     Dosage: INDICATION: AHM
     Route: 048
  4. CALCIUM/VITAMIN D [Concomitant]
     Active Substance: CALCIUM\VITAMIN D
     Dosage: INDICATION: AHM
     Route: 048
  5. COENZYME NOS [Concomitant]
     Dosage: INDICATION: AHM
     Route: 048
  6. BONIVA [Suspect]
     Active Substance: IBANDRONATE SODIUM
     Indication: OSTEOPENIA
     Route: 048
  7. VIVELLE [Concomitant]
     Active Substance: ESTRADIOL
     Dosage: VIVELLE 0.05/MG
     Route: 061
  8. PROMETRIUM [Concomitant]
     Active Substance: PROGESTERONE
     Dosage: DAY 1-12
     Route: 048
  9. SINGULAIR [Concomitant]
     Active Substance: MONTELUKAST SODIUM
     Route: 065

REACTIONS (2)
  - Myalgia [Recovered/Resolved]
  - Arthralgia [Recovered/Resolved]

NARRATIVE: CASE EVENT DATE: 20090602
